FAERS Safety Report 8764158 (Version 1)
Quarter: 2012Q4

REPORT INFORMATION
  Report Type: Spontaneous
  Country: US (occurrence: None)
  Receive Date: 20120828
  Receipt Date: 20120828
  Transmission Date: 20130627
  Serious: Yes (Other)
  Sender: FDA-Public Use
  Company Number: INT_00111_2012

PATIENT
  Age: 29 Year
  Sex: Male
  Weight: 97.52 kg

DRUGS (7)
  1. CEFTEPIME 2 G [Suspect]
     Dosage: 2 g 1x/12 hours, intrvenous (not otherwise specified
     Route: 042
     Dates: start: 20120521, end: 20120601
  2. CEFTEPIME 2 G [Suspect]
     Dosage: 2 g 1x/12 hours, intrvenous (not otherwise specified
     Route: 042
     Dates: start: 20120521, end: 20120601
  3. CEFTEPIME 2 G [Suspect]
     Dosage: 2 g 1x/12 hours, intrvenous (not otherwise specified
     Route: 042
     Dates: start: 20120521, end: 20120601
  4. VANCOMYCIN HCL [Suspect]
     Dosage: 1x/12 hours Intravenous (not otherwise specified)
     Route: 042
     Dates: start: 20120521, end: 20120606
  5. VANCOMYCIN HCL [Suspect]
     Dosage: 1x/12 hours Intravenous (not otherwise specified)
     Route: 042
     Dates: start: 20120521, end: 20120606
  6. VANCOMYCIN HCL [Suspect]
     Dosage: 1x/12 hours Intravenous (not otherwise specified)
     Route: 042
     Dates: start: 20120521, end: 20120606
  7. VANCOMYCIN [Concomitant]

REACTIONS (3)
  - Rash pruritic [None]
  - Rash erythematous [None]
  - Rash generalised [None]
